FAERS Safety Report 7692919-3 (Version None)
Quarter: 2011Q3

REPORT INFORMATION
  Report Type: 
  Country: None (occurrence: None)
  Receive Date: 20110815
  Receipt Date: 20110805
  Transmission Date: 20111222
  Serious: Yes (Disabling)
  Sender: FDA-Public Use
  Company Number: MSTR-NO-1108S-0209

PATIENT
  Age: 73 Year
  Sex: Male

DRUGS (6)
  1. DEXAMETHASONE [Concomitant]
  2. ZOMETA [Concomitant]
  3. METASTRON [Suspect]
     Indication: METASTATIC PAIN
     Dosage: 112 MBQ, SINGLE DOSE, INTRAVENOUS
     Route: 042
     Dates: start: 20100915, end: 20100915
  4. LEUPLIN (LEUPRORELIN ACETATE) [Concomitant]
  5. VOLTAREN [Concomitant]
  6. FAMOTIDINE [Concomitant]

REACTIONS (2)
  - SUBDURAL HAEMATOMA [None]
  - BONE MARROW FAILURE [None]
